FAERS Safety Report 7867604-5 (Version None)
Quarter: 2011Q4

REPORT INFORMATION
  Report Type: 
  Country: None (occurrence: None)
  Receive Date: 20111028
  Receipt Date: 20100629
  Transmission Date: 20120403
  Serious: No
  Sender: FDA-Public Use
  Company Number: US-BAYER-201027150NA

PATIENT
  Age: 29 Year
  Sex: Female
  Weight: 50 kg

DRUGS (7)
  1. ULTRAVIST 300 [Suspect]
     Indication: COMPUTERISED TOMOGRAM ABDOMEN
  2. READI-CAT [Concomitant]
     Indication: COMPUTERISED TOMOGRAM ABDOMEN
     Dosage: 1 1/2 (ILLEGIBLE)
     Route: 048
     Dates: start: 20100629, end: 20100629
  3. ULTRAVIST 300 [Suspect]
     Indication: ABDOMINAL PAIN LOWER
  4. VALTREX [Concomitant]
     Dates: start: 20100628
  5. NAPROXEN [Concomitant]
     Dosage: INDICATED FOR PAIN (NOS)
  6. CIPROFLOXACIN [Concomitant]
     Dates: start: 20100628
  7. ULTRAVIST 300 [Suspect]
     Indication: DIARRHOEA
     Dosage: LEFT ANTECUBITAL USING POWER INJECTOR @ A RATE OF 2.0 CC/SECOND AND A WARMER
     Route: 042
     Dates: start: 20100629, end: 20100629

REACTIONS (1)
  - URTICARIA [None]
